FAERS Safety Report 6337337-5 (Version None)
Quarter: 2009Q3

REPORT INFORMATION
  Report Type: 
  Country: None (occurrence: None)
  Receive Date: 20090828
  Receipt Date: 20090828
  Transmission Date: 20100115
  Serious: Yes (Hospitalization)
  Sender: FDA-Public Use
  Company Number: None

PATIENT
  Age: 35 Year
  Sex: Male

DRUGS (3)
  1. TRAMADOL HCL [Suspect]
     Indication: PAIN
     Dosage: 1-2 TABS Q4-6H PRN PO 3-4 WEEKS
     Route: 048
  2. LISINOPRIL [Concomitant]
  3. MIRTAZAPINE [Concomitant]

REACTIONS (6)
  - CONFUSIONAL STATE [None]
  - CONVULSIVE THRESHOLD LOWERED [None]
  - EPILEPSY [None]
  - LOSS OF CONSCIOUSNESS [None]
  - STRESS [None]
  - WITHDRAWAL SYNDROME [None]
